FAERS Safety Report 9378720 (Version 2)
Quarter: 2013Q3

REPORT INFORMATION
  Report Type: Spontaneous
  Country: US (occurrence: None)
  Receive Date: 20130626
  Receipt Date: 20130813
  Transmission Date: 20140515
  Serious: Yes (Other)
  Sender: FDA-Public Use
  Company Number: JPI-P-033031

PATIENT
  Age: 62 Year
  Sex: Female
  Weight: 77.11 kg

DRUGS (15)
  1. XYREM [Suspect]
     Indication: SOMNOLENCE
     Dosage: 4.5 GM (2.25 GM,2 IN 1 D),ORAL
     Route: 048
     Dates: start: 20130528, end: 2013
  2. NORTRIPTYLINE [Suspect]
     Indication: PRODUCT USED FOR UNKNOWN INDICATION
  3. ACETYLSALICYLIC ACID (TABLETS) [Concomitant]
  4. GLUCOSAMINE + CHONDROITIN [Concomitant]
  5. METFORMIN (TABLETS) [Concomitant]
  6. EUPHAUSIA SUPERBA (UNKNOWN) [Concomitant]
  7. LISINOPRIL-HYDROCHLOROTHIAZIDE (TABLETS) [Concomitant]
  8. METOPROLOL SUCCINATE ER (TABLETS) [Concomitant]
  9. NORTRIPTYLINE (CAPSULE) [Concomitant]
  10. NOVOLOG [Concomitant]
  11. MODAFINIL (TABLETS) [Concomitant]
  12. PRAMLINTIDE ACETATE (INJECTION) [Concomitant]
  13. TRAMADOL HYDROCHLORIDE (TABLETS) [Concomitant]
  14. VITAMIN B-12 (SYRUP) [Concomitant]
  15. RANITIDINE HCL (TABLETS) [Concomitant]

REACTIONS (4)
  - Angina unstable [None]
  - Chest pain [None]
  - Dyspnoea [None]
  - Heart rate increased [None]
